FAERS Safety Report 4285671-5 (Version None)
Quarter: 2004Q1

REPORT INFORMATION
  Report Type: 
  Country: None (occurrence: None)
  Receive Date: 20040202
  Receipt Date: 20040122
  Transmission Date: 20041129
  Serious: Yes (Hospitalization)
  Sender: FDA-Public Use
  Company Number: MK200310-0321-2

PATIENT
  Age: 39 Year
  Sex: Female

DRUGS (11)
  1. METHADOSE [Suspect]
     Indication: DEPENDENCE
     Dosage: 70 MG DAILY
     Dates: start: 20031018, end: 20031024
  2. LASIX [Concomitant]
  3. POTASSIUM [Concomitant]
  4. ZOLOFT [Concomitant]
  5. KLONOPIN [Concomitant]
  6. ZESTRIL [Concomitant]
  7. AMARYL [Concomitant]
  8. COREG [Concomitant]
  9. TRICOR [Concomitant]
  10. LIPITOR [Concomitant]
  11. ASPIRIN [Concomitant]

REACTIONS (10)
  - DIZZINESS [None]
  - GAIT DISTURBANCE [None]
  - HEADACHE [None]
  - HYPOAESTHESIA [None]
  - LEG AMPUTATION [None]
  - MUSCLE CRAMP [None]
  - MYOCARDIAL INFARCTION [None]
  - NAUSEA [None]
  - THROMBOSIS [None]
  - VOMITING [None]
